FAERS Safety Report 9551812 (Version 1)
Quarter: 2013Q3

REPORT INFORMATION
  Report Type: Spontaneous
  Country: US (occurrence: None)
  Receive Date: 20130724
  Receipt Date: 20130724
  Transmission Date: 20140515
  Serious: Yes (Other)
  Sender: FDA-Public Use
  Company Number: PHEH2012US024195

PATIENT
  Age: 71 Year
  Sex: Male
  Weight: 70.7 kg

DRUGS (2)
  1. GLEEVEC (IMATINIB) UNKNOWN [Suspect]
     Indication: CHRONIC MYELOID LEUKAEMIA
     Route: 048
     Dates: start: 092010, end: 201010
  2. SPRYCEL (DASATINIB MONOHYDRATE) [Suspect]

REACTIONS (1)
  - Pleural effusion [None]
